FAERS Safety Report 7396104-4 (Version None)
Quarter: 2011Q1

REPORT INFORMATION
  Report Type: 
  Country: None (occurrence: None)
  Receive Date: 20110301
  Receipt Date: 20100621
  Transmission Date: 20110831
  Serious: Yes (Other)
  Sender: FDA-Public Use
  Company Number: 2211100-US-JNJFOC-20100502873

PATIENT
  Age: 5 Year
  Sex: Female
  Weight: 18.1439 kg

DRUGS (4)
  1. CHILDREN'S MOTRIN [Suspect]
     Indication: ILL-DEFINED DISORDER
     Dosage: ORAL
     Route: 048
  2. CHILDREN'S MOTRIN [Suspect]
     Indication: ILL-DEFINED DISORDER
     Dosage: ORAL
     Route: 048
  3. CHILDREN'S TYLENOL SUSPENSION [Suspect]
     Indication: ILL-DEFINED DISORDER
  4. BENADRYL [Suspect]
     Indication: ILL-DEFINED DISORDER

REACTIONS (4)
  - GASTRIC DISORDER [None]
  - PRODUCT QUALITY ISSUE [None]
  - DECREASED APPETITE [None]
  - WEIGHT DECREASED [None]
